FAERS Safety Report 7997516-8 (Version None)
Quarter: 2011Q4

REPORT INFORMATION
  Report Type: 
  Country: None (occurrence: None)
  Receive Date: 20111221
  Receipt Date: 20111125
  Transmission Date: 20120403
  Serious: Yes (Other)
  Sender: FDA-Public Use
  Company Number: GR-B.I. PHARMACEUTICALS,INC./RIDGEFIELD-2011-EU-00876GB

PATIENT
  Age: 65 Year
  Sex: Male

DRUGS (5)
  1. TRIATEC PLUS [Concomitant]
     Indication: HYPERTENSION
  2. PROCORALAN [Concomitant]
     Indication: ANGINA PECTORIS
  3. PRADAXA [Suspect]
     Indication: ATRIAL FIBRILLATION
     Dosage: 220 MG
     Route: 048
     Dates: start: 20111105, end: 20111115
  4. DILTIAZEM HCL [Concomitant]
     Indication: HYPERTENSION
  5. UNSPECIFIED STATIN [Concomitant]
     Indication: HYPERLIPIDAEMIA

REACTIONS (2)
  - HEMIPARESIS [None]
  - TRANSIENT ISCHAEMIC ATTACK [None]
